FAERS Safety Report 6942869-2 (Version None)
Quarter: 2010Q3

REPORT INFORMATION
  Report Type: 
  Country: None (occurrence: None)
  Receive Date: 20100826
  Receipt Date: 20100817
  Transmission Date: 20110219
  Serious: Yes (Life-Threatening, Hospitalization, Other)
  Sender: FDA-Public Use
  Company Number: BR-ROCHE-719325

PATIENT
  Sex: Female
  Weight: 65.8 kg

DRUGS (6)
  1. HERCEPTIN [Suspect]
     Route: 042
     Dates: start: 20060101, end: 20070101
  2. HERCEPTIN [Suspect]
     Dosage: DOSE: 440 MG/20 ML
     Route: 042
     Dates: start: 20091201
  3. ZOLEDRONATE [Concomitant]
     Route: 042
     Dates: start: 20100802
  4. DECADRON [Concomitant]
     Indication: PREMEDICATION
     Dates: start: 20100802
  5. KYTRIL [Concomitant]
     Indication: PREMEDICATION
     Dates: start: 20100802
  6. LETROZOLE [Concomitant]
     Indication: BREAST CANCER

REACTIONS (7)
  - CARDIAC TAMPONADE [None]
  - INFUSION RELATED REACTION [None]
  - LEUKOCYTOSIS [None]
  - LUNG NEOPLASM [None]
  - MALIGNANT NEOPLASM PROGRESSION [None]
  - PERICARDIAL EFFUSION [None]
  - PLEURAL EFFUSION [None]
